FAERS Safety Report 19693993 (Version 3)
Quarter: 2021Q3

REPORT INFORMATION
  Report Type: Spontaneous
  Country: JP (occurrence: JP)
  Receive Date: 20210812
  Receipt Date: 20210909
  Transmission Date: 20211014
  Serious: Yes (Hospitalization, Other)
  Sender: FDA-Public Use
  Company Number: JP-LUNDBECK-DKLU3036720

PATIENT
  Sex: Male

DRUGS (15)
  1. VIGABATRIN (FOR ORAL SOLUTION) [Suspect]
     Active Substance: VIGABATRIN
     Indication: INFANTILE SPASMS
     Dosage: DAILY DOSE: 57 MG/KG,BID (650 MG)
     Route: 048
     Dates: start: 20210602, end: 20210725
  2. VIGABATRIN (FOR ORAL SOLUTION) [Suspect]
     Active Substance: VIGABATRIN
     Dosage: DAILY DOSE: 62MG/KG, BID (700MG)
     Route: 048
     Dates: start: 20210513, end: 20210601
  3. VIGABATRIN (FOR ORAL SOLUTION) [Suspect]
     Active Substance: VIGABATRIN
     Dosage: DAILY DOSE: 81MG/KG, BID (800MG)
     Route: 048
     Dates: start: 20210115, end: 20210512
  4. TRICLORYL [Concomitant]
     Active Substance: TRICLOFOS SODIUM
     Indication: PRODUCT USED FOR UNKNOWN INDICATION
     Dosage: DAILY DOSE: 3 TO 5 ML, PRN
     Route: 048
  5. SODIUM VALPROATE [Concomitant]
     Active Substance: VALPROATE SODIUM
     Dosage: DAILY DOSE: 150 MG
     Route: 048
     Dates: start: 20210217, end: 20210303
  6. VIGABATRIN (FOR ORAL SOLUTION) [Suspect]
     Active Substance: VIGABATRIN
     Dosage: DAILY DOSE: 25 MG/KG, BID (250 MG)
     Route: 048
     Dates: start: 20201118, end: 20201209
  7. SODIUM VALPROATE [Concomitant]
     Active Substance: VALPROATE SODIUM
     Dosage: DAILY DOSE: 250 MG
     Route: 048
     Dates: start: 20210115, end: 20210216
  8. SODIUM VALPROATE [Concomitant]
     Active Substance: VALPROATE SODIUM
     Dosage: DAILY DOSE: 250 MG
     Route: 048
     Dates: start: 20210304, end: 20210323
  9. VIGABATRIN (FOR ORAL SOLUTION) [Suspect]
     Active Substance: VIGABATRIN
     Dosage: DAILY DOSE: 53MG/KG, BID (600MG)
     Route: 048
     Dates: start: 20210726
  10. SODIUM VALPROATE [Concomitant]
     Active Substance: VALPROATE SODIUM
     Indication: INFANTILE SPASMS
     Dosage: DAILY DOSE: 350 MG
     Route: 048
     Dates: end: 20210114
  11. L CARTIN [Concomitant]
     Active Substance: LEVOCARNITINE HYDROCHLORIDE
     Indication: PRODUCT USED FOR UNKNOWN INDICATION
     Dosage: DAILY DOSE: 300 MG
     Route: 048
     Dates: start: 20201102
  12. HYALURONATE NA [Concomitant]
     Active Substance: HYALURONATE SODIUM
     Indication: PRODUCT USED FOR UNKNOWN INDICATION
     Dosage: PRN
     Route: 047
     Dates: start: 20210719
  13. GLYCERINE [Concomitant]
     Active Substance: GLYCERIN
     Indication: PRODUCT USED FOR UNKNOWN INDICATION
     Dosage: DAILY DOSE: 30 ML, PRN
     Route: 054
  14. VIGABATRIN (FOR ORAL SOLUTION) [Suspect]
     Active Substance: VIGABATRIN
     Dosage: DAILY DOSE: 50 MG/KG, BID (500 MG)
     Route: 048
     Dates: start: 20201210, end: 20210114
  15. SODIUM VALPROATE [Concomitant]
     Active Substance: VALPROATE SODIUM
     Dosage: DAILY DOSE: 300 MG
     Route: 048
     Dates: start: 20210324

REACTIONS (2)
  - Oxygen saturation decreased [Recovered/Resolved]
  - Pneumonia [Recovered/Resolved]

NARRATIVE: CASE EVENT DATE: 20210719
